FAERS Safety Report 19110990 (Version 1)
Quarter: 2021Q2

REPORT INFORMATION
  Report Type: Spontaneous
  Country: US (occurrence: US)
  Receive Date: 20210409
  Receipt Date: 20210409
  Transmission Date: 20210717
  Serious: No
  Sender: FDA-Public Use
  Company Number: US-ASTRAZENECA-2021A145641

PATIENT
  Sex: Male
  Weight: 85.3 kg

DRUGS (5)
  1. XIGDUO XR [Suspect]
     Active Substance: DAPAGLIFLOZIN PROPANEDIOL\METFORMIN HYDROCHLORIDE
     Indication: TYPE 2 DIABETES MELLITUS
     Dosage: 5MG OF 1000 MG TWO TIMES A DAY.
     Route: 048
  2. ZONISAMIDE. [Concomitant]
     Active Substance: ZONISAMIDE
     Indication: EPILEPSY
     Route: 048
     Dates: start: 2009
  3. RAMIPRIL. [Concomitant]
     Active Substance: RAMIPRIL
     Indication: RENAL DISORDER
     Route: 048
     Dates: start: 2016
  4. DEPAKOTE ER [Concomitant]
     Active Substance: DIVALPROEX SODIUM
     Indication: EPILEPSY
     Route: 048
     Dates: start: 2009
  5. ATORVASTATIN [Concomitant]
     Active Substance: ATORVASTATIN
     Indication: MYOCARDIAL INFARCTION
     Route: 048

REACTIONS (2)
  - Product coating issue [Unknown]
  - Blood glucose increased [Unknown]
